FAERS Safety Report 6784713-2 (Version None)
Quarter: 2010Q2

REPORT INFORMATION
  Report Type: 
  Country: None (occurrence: None)
  Receive Date: 20100622
  Receipt Date: 20100611
  Transmission Date: 20101027
  Serious: Yes (Other)
  Sender: FDA-Public Use
  Company Number: CN-PFIZER INC-2010073625

PATIENT
  Age: 8 Year
  Sex: Male

DRUGS (2)
  1. ZITHROMAX [Suspect]
     Indication: INFECTION
     Dosage: 0.4 G, 1X/DAY
     Route: 042
  2. VITAMIN B6 [Concomitant]
     Indication: PROPHYLAXIS
     Dosage: 0.15 G, 1X/DAY

REACTIONS (1)
  - PHLEBITIS SUPERFICIAL [None]
